FAERS Safety Report 5936124-7 (Version None)
Quarter: 2008Q4

REPORT INFORMATION
  Report Type: 
  Country: None (occurrence: None)
  Receive Date: 20081030
  Receipt Date: 20081020
  Transmission Date: 20090506
  Serious: Yes (Hospitalization, Other)
  Sender: FDA-Public Use
  Company Number: ES-BAYER-200716406GDS

PATIENT
  Age: 84 Year
  Sex: Female

DRUGS (5)
  1. SORAFENIB [Suspect]
     Indication: RENAL CELL CARCINOMA
     Route: 048
     Dates: start: 20060120, end: 20071017
  2. HIDROSALURETIL [Concomitant]
     Indication: HYPERTENSION
     Route: 048
     Dates: start: 19990101
  3. OMEPRAZOLE [Concomitant]
     Indication: PROPHYLAXIS
     Route: 048
     Dates: start: 19940101
  4. LIPEMOL [Concomitant]
     Indication: HYPERCHOLESTEROLAEMIA
     Route: 048
     Dates: start: 19990101
  5. ACETAMINOPHEN [Concomitant]
     Indication: PAIN
     Route: 048
     Dates: start: 19940101

REACTIONS (2)
  - CEREBRAL ISCHAEMIA [None]
  - MENTAL STATUS CHANGES [None]
